FAERS Safety Report 7355622-5 (Version None)
Quarter: 2011Q1

REPORT INFORMATION
  Report Type: 
  Country: None (occurrence: None)
  Receive Date: 20110311
  Receipt Date: 20110311
  Transmission Date: 20110831
  Serious: Yes (Death, Life-Threatening, Hospitalization, Other)
  Sender: FDA-Public Use
  Company Number: None

PATIENT
  Sex: Female
  Weight: 38.5557 kg

DRUGS (1)
  1. LEVOTHYROXINE SODIUM [Suspect]
     Indication: HYPERTHYROIDISM
     Dosage: 0.075 MG 1X DAILY PILL
     Dates: start: 20101118

REACTIONS (4)
  - SPEECH DISORDER [None]
  - MOTOR DYSFUNCTION [None]
  - BLOOD GLUCOSE DECREASED [None]
  - ABNORMAL BEHAVIOUR [None]
